FAERS Safety Report 11382879 (Version 1)
Quarter: 2015Q3

REPORT INFORMATION
  Report Type: Spontaneous
  Country: HU (occurrence: HU)
  Receive Date: 20150814
  Receipt Date: 20150814
  Transmission Date: 20151125
  Serious: Yes (Hospitalization, Other)
  Sender: FDA-Public Use
  Company Number: HU-JNJFOC-20150809789

PATIENT
  Age: 43 Year
  Sex: Female
  Weight: 55.3 kg

DRUGS (3)
  1. REMICADE [Suspect]
     Active Substance: INFLIXIMAB
     Indication: CROHN^S DISEASE
     Dosage: RECEIVED BETWEEN 10-OCT-2011 AND 04-OCT-2012
     Route: 042
  2. METHOTREXATE [Concomitant]
     Active Substance: METHOTREXATE
     Route: 065
     Dates: start: 200904
  3. REMICADE [Suspect]
     Active Substance: INFLIXIMAB
     Indication: CROHN^S DISEASE
     Route: 042
     Dates: start: 2007, end: 200812

REACTIONS (3)
  - Arthritis [Unknown]
  - Anal abscess [Unknown]
  - Anaemia [Unknown]

NARRATIVE: CASE EVENT DATE: 20130508
